FAERS Safety Report 25616735 (Version 1)
Quarter: 2025Q3

REPORT INFORMATION
  Report Type: Spontaneous
  Country: US (occurrence: US)
  Receive Date: 20250729
  Receipt Date: 20250729
  Transmission Date: 20251020
  Serious: Yes (Hospitalization)
  Sender: MYLAN
  Company Number: US-MYLANLABS-2025M1061670

PATIENT
  Sex: Male

DRUGS (5)
  1. BUPRENORPHINE [Suspect]
     Active Substance: BUPRENORPHINE
     Indication: Product used for unknown indication
  2. FENTANYL [Suspect]
     Active Substance: FENTANYL
     Indication: Product used for unknown indication
  3. AMPHOTERICIN B [Suspect]
     Active Substance: AMPHOTERICIN B
     Indication: Cryptococcal meningoencephalitis
  4. FLUCYTOSINE [Suspect]
     Active Substance: FLUCYTOSINE
     Indication: Cryptococcal meningoencephalitis
  5. NALOXONE [Concomitant]
     Active Substance: NALOXONE
     Indication: Mental status changes

REACTIONS (6)
  - Cryptococcal meningoencephalitis [Unknown]
  - Drug abuse [Unknown]
  - Drug ineffective [Unknown]
  - Cerebral infarction [Unknown]
  - Cerebellar infarction [Unknown]
  - Fall [Unknown]
